FAERS Safety Report 4382046-5 (Version None)
Quarter: 2004Q2

REPORT INFORMATION
  Report Type: 
  Country: None (occurrence: None)
  Receive Date: 20040615
  Receipt Date: 20040526
  Transmission Date: 20050107
  Serious: Yes (Hospitalization)
  Sender: FDA-Public Use
  Company Number: A0512293A

PATIENT
  Age: 51 Year
  Sex: Female

DRUGS (2)
  1. COMMIT [Suspect]
     Indication: EX-SMOKER
     Dosage: 2 MG/ TRANSBUCCAL
     Dates: start: 20040101
  2. PHENYTOIN SODIUM [Concomitant]

REACTIONS (5)
  - BLOOD PRESSURE INCREASED [None]
  - CHOKING SENSATION [None]
  - FEELING ABNORMAL [None]
  - NAUSEA [None]
  - THROAT TIGHTNESS [None]
